FAERS Safety Report 6336146-0 (Version None)
Quarter: 2009Q3

REPORT INFORMATION
  Report Type: 
  Country: None (occurrence: None)
  Receive Date: 20090831
  Receipt Date: 20090831
  Transmission Date: 20100115
  Serious: Yes (Hospitalization)
  Sender: FDA-Public Use
  Company Number: None

PATIENT
  Sex: Male
  Weight: 123.7 kg

DRUGS (2)
  1. CISPLATIN [Suspect]
     Dosage: 165 MG
  2. VINORELBINE TARTRATE [Suspect]
     Dosage: 66 NG

REACTIONS (4)
  - MUCOSAL INFLAMMATION [None]
  - NEUTROPENIA [None]
  - ORAL CANDIDIASIS [None]
  - PYREXIA [None]
